APPROVED DRUG PRODUCT: CYCLOBENZAPRINE HYDROCHLORIDE
Active Ingredient: CYCLOBENZAPRINE HYDROCHLORIDE
Strength: 10MG
Dosage Form/Route: TABLET;ORAL
Application: A078048 | Product #002 | TE Code: AB
Applicant: KVK TECH INC
Approved: Feb 28, 2011 | RLD: No | RS: No | Type: RX